FAERS Safety Report 6487936-5 (Version None)
Quarter: 2009Q4

REPORT INFORMATION
  Report Type: 
  Country: None (occurrence: None)
  Receive Date: 20091210
  Receipt Date: 20090825
  Transmission Date: 20100525
  Serious: No
  Sender: FDA-Public Use
  Company Number: US-AMGEN-KDL361696

PATIENT
  Sex: Female

DRUGS (2)
  1. ENBREL [Suspect]
     Indication: RHEUMATOID ARTHRITIS
     Route: 058
     Dates: start: 20080416
  2. METHOTREXATE [Concomitant]

REACTIONS (5)
  - BACK PAIN [None]
  - HYPOAESTHESIA [None]
  - LUMBAR SPINAL STENOSIS [None]
  - MUSCLE SPASMS [None]
  - MUSCLE SPASTICITY [None]
